FAERS Safety Report 4752375-1 (Version None)
Quarter: 2005Q3

REPORT INFORMATION
  Report Type: 
  Country: None (occurrence: None)
  Receive Date: 20050823
  Receipt Date: 20050815
  Transmission Date: 20060218
  Serious: Yes (Hospitalization)
  Sender: FDA-Public Use
  Company Number: 2005116336

PATIENT
  Age: 61 Year
  Sex: Male

DRUGS (10)
  1. ATORVASTATIN CALCIUM [Suspect]
     Indication: BLOOD CHOLESTEROL INCREASED
     Dosage: 10 MG INCREASED TO 40 MG (1 IN 1 D), ORAL
     Route: 048
     Dates: start: 20040101, end: 20050725
  2. CITALOPRAM (CITALOPRAM) [Suspect]
     Indication: DEPRESSION
     Dosage: 10 MG (10 MG, 1 IN 1 D), ORAL
     Route: 048
     Dates: start: 20021001, end: 20050726
  3. ACETAMINOPHEN W/ CODEINE [Concomitant]
  4. DIAZEPAM [Concomitant]
  5. THIAMINE (THIAMINE) [Concomitant]
  6. VITAMIN B COMPLEX CAP [Concomitant]
  7. ACETYLSALICYLIC ACID SRT [Concomitant]
  8. RAMIPRIL [Concomitant]
  9. METOPROLOL TARTRATE [Concomitant]
  10. LANSOPRAZOLE [Concomitant]

REACTIONS (3)
  - ACUTE CORONARY SYNDROME [None]
  - BLOOD CREATINE PHOSPHOKINASE INCREASED [None]
  - CHEST PAIN [None]
